FAERS Safety Report 10977634 (Version 1)
Quarter: 2015Q2

REPORT INFORMATION
  Report Type: Spontaneous
  Country: US (occurrence: None)
  Receive Date: 20150401
  Receipt Date: 20150401
  Transmission Date: 20150821
  Serious: No
  Sender: FDA-Public Use
  Company Number: None

PATIENT
  Age: 60 Year
  Sex: Male
  Weight: 105.24 kg

DRUGS (12)
  1. VITAMIN E CAPSULES [Concomitant]
  2. GABAPENTIN. [Concomitant]
     Active Substance: GABAPENTIN
  3. PLAVIX [Concomitant]
     Active Substance: CLOPIDOGREL BISULFATE
  4. GROUND GINGER [Concomitant]
  5. CORTEF [Concomitant]
     Active Substance: HYDROCORTISONE
  6. ASPRIN [Concomitant]
     Active Substance: ASPIRIN
  7. LISINOPRIL. [Concomitant]
     Active Substance: LISINOPRIL
  8. FLORINEF ACETATE [Concomitant]
     Active Substance: FLUDROCORTISONE ACETATE
  9. CLONAZEPAM. [Concomitant]
     Active Substance: CLONAZEPAM
  10. PLAVIX [Suspect]
     Active Substance: CLOPIDOGREL BISULFATE
     Indication: CORONARY ARTERIAL STENT INSERTION
     Dosage: 1
     Route: 048
     Dates: start: 20140310, end: 20150310
  11. ISOSORBIDE [Concomitant]
     Active Substance: ISOSORBIDE
  12. L_ARGININE [Concomitant]

REACTIONS (2)
  - Gastrointestinal disorder [None]
  - Gallbladder pain [None]

NARRATIVE: CASE EVENT DATE: 20130215
